FAERS Safety Report 22102316 (Version 1)
Quarter: 2023Q1

REPORT INFORMATION
  Report Type: Spontaneous
  Country: US (occurrence: None)
  Receive Date: 20230315
  Receipt Date: 20230315
  Transmission Date: 20230418
  Serious: Yes (Other)
  Sender: FDA-Public Use
  Company Number: None

PATIENT
  Age: 39 Year
  Sex: Female
  Weight: 72 kg

DRUGS (5)
  1. MODAFINIL [Suspect]
     Active Substance: MODAFINIL
     Indication: Narcolepsy
     Route: 048
     Dates: start: 20220526, end: 20220920
  2. ADDERALL [Concomitant]
     Active Substance: AMPHETAMINE ASPARTATE\AMPHETAMINE SULFATE\DEXTROAMPHETAMINE SACCHARATE\DEXTROAMPHETAMINE SULFATE
  3. PROAIR HFA [Concomitant]
     Active Substance: ALBUTEROL SULFATE
  4. VITAMINS [Concomitant]
     Active Substance: VITAMINS
  5. hemaplex [Concomitant]

REACTIONS (11)
  - Alopecia [None]
  - Androgenetic alopecia [None]
  - Hair texture abnormal [None]
  - Alopecia [None]
  - Menstruation irregular [None]
  - Blood glucose increased [None]
  - Glycosylated haemoglobin increased [None]
  - Auriculotemporal syndrome [None]
  - Vitamin B complex deficiency [None]
  - Drug interaction [None]
  - Paraesthesia [None]

NARRATIVE: CASE EVENT DATE: 20220901
